FAERS Safety Report 18736001 (Version 1)
Quarter: 2021Q1

REPORT INFORMATION
  Report Type: Spontaneous
  Country: ES (occurrence: ES)
  Receive Date: 20210113
  Receipt Date: 20210113
  Transmission Date: 20210419
  Serious: Yes (Death, Life-Threatening, Hospitalization)
  Sender: FDA-Public Use
  Company Number: ES-CELGENEUS-ESP-20201006944

PATIENT
  Age: 73 Year
  Sex: Female

DRUGS (34)
  1. MOR00208 [Suspect]
     Active Substance: TAFASITAMAB
     Dosage: 12 MILLIGRAM/KILOGRAM
     Route: 041
     Dates: start: 20200716, end: 20200716
  2. LENALIDOMIDE [Suspect]
     Active Substance: LENALIDOMIDE
     Dosage: 25 MILLIGRAM
     Route: 048
     Dates: start: 20200716, end: 20200718
  3. MOR00208 [Suspect]
     Active Substance: TAFASITAMAB
     Dosage: 12 MILLIGRAM/KILOGRAM
     Route: 041
     Dates: start: 20200528, end: 20200528
  4. ALLOPURINOL. [Concomitant]
     Active Substance: ALLOPURINOL
     Indication: PRODUCT USED FOR UNKNOWN INDICATION
     Route: 065
     Dates: start: 20200507
  5. ENOXAPARIN [Concomitant]
     Active Substance: ENOXAPARIN
     Indication: PRODUCT USED FOR UNKNOWN INDICATION
     Route: 065
     Dates: start: 20200514
  6. LENALIDOMIDE [Suspect]
     Active Substance: LENALIDOMIDE
     Dosage: 25 MILLIGRAM
     Route: 048
     Dates: start: 20200806, end: 20200830
  7. R?CHOP [Suspect]
     Active Substance: CYCLOPHOSPHAMIDE\DOXORUBICIN\PREDNISONE\RITUXIMAB\VINCRISTINE
     Indication: DIFFUSE LARGE B-CELL LYMPHOMA
     Route: 065
     Dates: start: 20200514
  8. LENALIDOMIDE [Suspect]
     Active Substance: LENALIDOMIDE
     Indication: DIFFUSE LARGE B-CELL LYMPHOMA
     Dosage: 25 MILLIGRAM
     Route: 048
     Dates: start: 20200514, end: 20200523
  9. LENALIDOMIDE [Suspect]
     Active Substance: LENALIDOMIDE
     Dosage: 25 MILLIGRAM
     Route: 048
     Dates: start: 20200625, end: 20200704
  10. LENALIDOMIDE [Suspect]
     Active Substance: LENALIDOMIDE
     Dosage: 25 MILLIGRAM
     Route: 048
     Dates: start: 20200827, end: 20200905
  11. MOR00208 [Suspect]
     Active Substance: TAFASITAMAB
     Dosage: 12 MILLIGRAM/KILOGRAM
     Route: 041
     Dates: start: 20200618, end: 20200618
  12. MOR00208 [Suspect]
     Active Substance: TAFASITAMAB
     Dosage: 12 MILLIGRAM/KILOGRAM
     Route: 041
     Dates: start: 20200625, end: 20200625
  13. METRONIDAZOLE. [Concomitant]
     Active Substance: METRONIDAZOLE
     Indication: PRODUCT USED FOR UNKNOWN INDICATION
     Route: 065
     Dates: start: 20200727, end: 20200806
  14. ATENOLOL. [Concomitant]
     Active Substance: ATENOLOL
     Indication: PRODUCT USED FOR UNKNOWN INDICATION
     Route: 065
     Dates: start: 20190925
  15. TRIMETHOPRIM. [Concomitant]
     Active Substance: TRIMETHOPRIM
     Indication: PRODUCT USED FOR UNKNOWN INDICATION
     Route: 065
     Dates: start: 20200508
  16. ACYCLOVIR. [Concomitant]
     Active Substance: ACYCLOVIR
     Indication: PRODUCT USED FOR UNKNOWN INDICATION
     Route: 065
     Dates: start: 20200507
  17. FOLIC ACID. [Concomitant]
     Active Substance: FOLIC ACID
     Indication: PRODUCT USED FOR UNKNOWN INDICATION
     Route: 065
     Dates: start: 20200507
  18. MOR00208 [Suspect]
     Active Substance: TAFASITAMAB
     Indication: DIFFUSE LARGE B-CELL LYMPHOMA
     Dosage: 12 MILLIGRAM/KILOGRAM
     Route: 041
     Dates: start: 20200514, end: 20200514
  19. MOR00208 [Suspect]
     Active Substance: TAFASITAMAB
     Dosage: 12 MILLIGRAM/KILOGRAM
     Route: 041
     Dates: start: 20200806, end: 20200806
  20. MOR00208 [Suspect]
     Active Substance: TAFASITAMAB
     Dosage: 12 MILLIGRAM/KILOGRAM
     Route: 041
     Dates: start: 20200813, end: 20200813
  21. MOR00208 [Suspect]
     Active Substance: TAFASITAMAB
     Dosage: 12 MILLIGRAM/KILOGRAM
     Route: 041
     Dates: start: 20200820, end: 20200820
  22. MOR00208 [Suspect]
     Active Substance: TAFASITAMAB
     Dosage: 12 MILLIGRAM/KILOGRAM
     Route: 041
     Dates: start: 20200827, end: 20200827
  23. SULFAMETHOXAZOLE [Concomitant]
     Active Substance: SULFAMETHOXAZOLE
     Indication: PRODUCT USED FOR UNKNOWN INDICATION
     Route: 065
     Dates: start: 20200508
  24. PHYSIOLOGICAL SALINE SOLUTION [Concomitant]
     Active Substance: SODIUM CHLORIDE
     Indication: PRODUCT USED FOR UNKNOWN INDICATION
     Route: 065
     Dates: start: 20200820, end: 20200820
  25. LENALIDOMIDE [Suspect]
     Active Substance: LENALIDOMIDE
     Dosage: 25 MILLIGRAM
     Route: 048
     Dates: start: 20200604, end: 20200613
  26. MOR00208 [Suspect]
     Active Substance: TAFASITAMAB
     Dosage: 12 MILLIGRAM/KILOGRAM
     Route: 041
     Dates: start: 20200521, end: 20200521
  27. MOR00208 [Suspect]
     Active Substance: TAFASITAMAB
     Dosage: 12 MILLIGRAM/KILOGRAM
     Route: 041
     Dates: start: 20200702, end: 20200702
  28. EBASTINA [Concomitant]
     Active Substance: EBASTINE
     Indication: PRODUCT USED FOR UNKNOWN INDICATION
     Route: 065
     Dates: start: 20190925
  29. CEFUROXIME. [Concomitant]
     Active Substance: CEFUROXIME
     Indication: PRODUCT USED FOR UNKNOWN INDICATION
     Route: 065
     Dates: start: 20200727, end: 20200808
  30. MOR00208 [Suspect]
     Active Substance: TAFASITAMAB
     Dosage: 12 MILLIGRAM/KILOGRAM
     Route: 041
     Dates: start: 20200604, end: 20200604
  31. MOR00208 [Suspect]
     Active Substance: TAFASITAMAB
     Dosage: 12 MILLIGRAM/KILOGRAM
     Route: 041
     Dates: start: 20200611, end: 20200611
  32. MOR00208 [Suspect]
     Active Substance: TAFASITAMAB
     Dosage: 12 MILLIGRAM/KILOGRAM
     Route: 041
     Dates: start: 20200730, end: 20200730
  33. TORASEMIDE [Concomitant]
     Active Substance: TORSEMIDE
     Indication: PRODUCT USED FOR UNKNOWN INDICATION
     Route: 065
     Dates: start: 20190925
  34. ACCOFIL [Concomitant]
     Active Substance: FILGRASTIM
     Indication: PRODUCT USED FOR UNKNOWN INDICATION
     Route: 065
     Dates: start: 20200811, end: 20200825

REACTIONS (1)
  - COVID-19 pneumonia [Fatal]

NARRATIVE: CASE EVENT DATE: 20200831
